FAERS Safety Report 7201623-7 (Version None)
Quarter: 2010Q4

REPORT INFORMATION
  Report Type: 
  Country: None (occurrence: None)
  Receive Date: 20101229
  Receipt Date: 20101224
  Transmission Date: 20110411
  Serious: Yes (Hospitalization)
  Sender: FDA-Public Use
  Company Number: JP-ROCHE-676703

PATIENT
  Sex: Female
  Weight: 53 kg

DRUGS (15)
  1. CELLCEPT [Suspect]
     Indication: SYSTEMIC LUPUS ERYTHEMATOSUS
     Route: 048
     Dates: start: 20091028, end: 20091105
  2. CELLCEPT [Suspect]
     Route: 048
     Dates: start: 20091106, end: 20091217
  3. BAKTAR [Suspect]
     Indication: PROPHYLAXIS
     Dosage: FORM: PER ORAL AGENT
     Route: 048
     Dates: start: 20091013
  4. TAKEPRON [Suspect]
     Indication: PROPHYLAXIS
     Route: 048
     Dates: start: 20091001
  5. ITRIZOLE [Suspect]
     Indication: PROPHYLAXIS
     Dosage: FORM:PERORAL LIQUID PREPARATION
     Route: 048
     Dates: start: 20091016
  6. PERSANTIN [Suspect]
     Indication: SYSTEMIC LUPUS ERYTHEMATOSUS
     Dosage: FORM: SUSTAINED RELEASE CAPSULE. DRUG NAME:PERSANTIN-L.
     Route: 048
     Dates: start: 20091016
  7. BONALON [Suspect]
     Indication: PROPHYLAXIS
     Dosage: REPORTED AS BONALON (ALENDRONATE SODIUM HYDRATE)
     Route: 048
     Dates: start: 20091023
  8. CRESTOR [Suspect]
     Indication: HYPERCHOLESTEROLAEMIA
     Route: 048
     Dates: start: 20091027
  9. ZETIA [Suspect]
     Indication: HYPERCHOLESTEROLAEMIA
     Route: 048
     Dates: start: 20091129
  10. MUCODYNE [Suspect]
     Indication: INFLUENZA
     Dosage: FORM: PER ORAL AGENT
     Route: 048
     Dates: start: 20091216, end: 20091217
  11. TAMIFLU [Concomitant]
     Indication: INFLUENZA
     Route: 048
     Dates: start: 20091216, end: 20091217
  12. MEDICON [Concomitant]
     Indication: INFLUENZA
     Dosage: FORM: ORAL FORMULATION (NOT OTHERWISE SPECIFIED). DRUG: MEDICON (DEXTROMETHORPHAN HYDROBROMIDE)
     Route: 048
     Dates: start: 20091216, end: 20091217
  13. COCARL [Concomitant]
     Indication: INFLUENZA
     Dosage: DRUG:COCARL(ACETAMINOPHEN), SINGLE USE
     Route: 048
     Dates: start: 20091216, end: 20091217
  14. METHYLPREDNISOLONE SODIUM SUCCINATE [Concomitant]
     Dosage: DOSAGE UNCERTAIN
     Route: 041
     Dates: start: 20091001, end: 20091003
  15. PREDONINE [Concomitant]
     Dosage: 50MG525MG
     Route: 048
     Dates: start: 20091004

REACTIONS (2)
  - AGRANULOCYTOSIS [None]
  - PNEUMONIA [None]
